FAERS Safety Report 6016407-5 (Version None)
Quarter: 2008Q4

REPORT INFORMATION
  Report Type: 
  Country: None (occurrence: None)
  Receive Date: 20081222
  Receipt Date: 20081211
  Transmission Date: 20090506
  Serious: Yes (Hospitalization)
  Sender: FDA-Public Use
  Company Number: DE-AMGEN-UK284119

PATIENT
  Sex: Male

DRUGS (11)
  1. PANITUMUMAB [Suspect]
     Indication: SQUAMOUS CELL CARCINOMA
     Route: 042
     Dates: start: 20080519
  2. CISPLATIN [Concomitant]
     Route: 042
     Dates: start: 20080519
  3. FLUORO-URACIL [Concomitant]
     Route: 042
  4. ADALAT [Concomitant]
     Route: 048
     Dates: start: 20080519
  5. ENALAPRIL MALEATE [Concomitant]
     Route: 048
     Dates: start: 20060401
  6. LYRICA [Concomitant]
     Route: 048
  7. NOCTAMID [Concomitant]
     Route: 048
     Dates: start: 20080513
  8. NOVALGIN [Concomitant]
     Route: 048
     Dates: start: 20080514
  9. PREDNISOLONE [Concomitant]
     Route: 048
     Dates: start: 20080425
  10. SIMVASTATIN [Concomitant]
     Dates: start: 20070401
  11. OMEPRAZOLE [Concomitant]
     Route: 048
     Dates: start: 20080416, end: 20080531

REACTIONS (9)
  - BACTERIAL INFECTION [None]
  - ENTEROBACTER INFECTION [None]
  - ESCHERICHIA INFECTION [None]
  - GENERAL PHYSICAL HEALTH DETERIORATION [None]
  - GLOSSITIS [None]
  - GLOSSODYNIA [None]
  - OROPHARYNGEAL PAIN [None]
  - SKIN DISORDER [None]
  - SMEAR SITE UNSPECIFIED ABNORMAL [None]
